FAERS Safety Report 7363441-9 (Version None)
Quarter: 2011Q1

REPORT INFORMATION
  Report Type: 
  Country: None (occurrence: None)
  Receive Date: 20110321
  Receipt Date: 20110311
  Transmission Date: 20110831
  Serious: Yes (Hospitalization, Other)
  Sender: FDA-Public Use
  Company Number: AR-AMGEN-ARGSP2011009427

PATIENT
  Sex: Female

DRUGS (4)
  1. ENBREL [Suspect]
     Indication: RHEUMATOID ARTHRITIS
     Dosage: 50 MG, WEEKLY
     Route: 058
     Dates: start: 20091001, end: 20100801
  2. SERTRALINE HYDROCHLORIDE [Concomitant]
     Dosage: UNK
     Route: 048
  3. LEVOTHYROXINE [Concomitant]
     Indication: THYROID DISORDER
     Dosage: UNK
     Route: 048
  4. PANTOPRAZOLE [Concomitant]
     Dosage: UNK
     Route: 048

REACTIONS (7)
  - BEDRIDDEN [None]
  - PYOTHORAX [None]
  - PNEUMOTHORAX [None]
  - SYSTEMIC LUPUS ERYTHEMATOSUS [None]
  - HYPOTHERMIA [None]
  - FIBROMYALGIA [None]
  - PYREXIA [None]
